FAERS Safety Report 13446551 (Version 1)
Quarter: 2017Q2

REPORT INFORMATION
  Report Type: Report from Study
  Country: CA (occurrence: CA)
  Receive Date: 20170417
  Receipt Date: 20170417
  Transmission Date: 20170830
  Serious: Yes (Other)
  Sender: FDA-Public Use
  Company Number: CA-AMGEN-CANSL2017056150

PATIENT
  Age: 75 Year
  Sex: Female

DRUGS (11)
  1. PROLIA [Suspect]
     Active Substance: DENOSUMAB
     Indication: OSTEOPENIA
  2. LIPITOR [Concomitant]
     Active Substance: ATORVASTATIN CALCIUM
  3. FLOVENT [Concomitant]
     Active Substance: FLUTICASONE PROPIONATE
  4. PROLIA [Suspect]
     Active Substance: DENOSUMAB
     Indication: OSTEOPOROSIS
     Dosage: UNK
     Route: 065
  5. VITAMIN C [Concomitant]
     Active Substance: ASCORBIC ACID
  6. ZOMIG [Concomitant]
     Active Substance: ZOLMITRIPTAN
  7. VITAMIN D [Concomitant]
     Active Substance: CHOLECALCIFEROL
  8. VENTOLIN [Concomitant]
     Active Substance: ALBUTEROL SULFATE
  9. OMEGA 3 [Concomitant]
     Active Substance: OMEGA-3 FATTY ACIDS
  10. ASA [Concomitant]
     Active Substance: ASPIRIN
  11. TECTA [Concomitant]
     Active Substance: PANTOPRAZOLE MAGNESIUM

REACTIONS (7)
  - Dizziness [Unknown]
  - Spinal fusion fracture [Unknown]
  - Loss of consciousness [Unknown]
  - Headache [Unknown]
  - Neck pain [Unknown]
  - Feeling hot [Unknown]
  - Intervertebral disc protrusion [Not Recovered/Not Resolved]
